FAERS Safety Report 25150590 (Version 2)
Quarter: 2025Q2

REPORT INFORMATION
  Report Type: Report from Study
  Country: US (occurrence: US)
  Receive Date: 20250402
  Receipt Date: 20250405
  Transmission Date: 20250717
  Serious: Yes (Death, Hospitalization)
  Sender: ABBVIE
  Company Number: US-ABBVIE-6205634

PATIENT
  Age: 50 Year
  Sex: Male

DRUGS (1)
  1. HUMIRA [Suspect]
     Active Substance: ADALIMUMAB
     Indication: Rheumatoid arthritis
     Route: 058

REACTIONS (5)
  - White blood cell count decreased [Fatal]
  - Influenza [Unknown]
  - Emphysema [Unknown]
  - Pneumonia fungal [Fatal]
  - Pyrexia [Unknown]

NARRATIVE: CASE EVENT DATE: 20250312
